FAERS Safety Report 6296935-8 (Version None)
Quarter: 2009Q3

REPORT INFORMATION
  Report Type: 
  Country: None (occurrence: None)
  Receive Date: 20090804
  Receipt Date: 20090724
  Transmission Date: 20100115
  Serious: Yes (Death, Hospitalization, Other)
  Sender: FDA-Public Use
  Company Number: IL-BAXTER-2009BH011461

PATIENT
  Age: 69 Year
  Sex: Male

DRUGS (11)
  1. CYCLOPHOSPHAMIDE [Suspect]
     Indication: B-CELL LYMPHOMA
     Route: 042
     Dates: start: 20070605, end: 20071101
  2. MABTHERA [Suspect]
     Indication: B-CELL LYMPHOMA
     Route: 042
     Dates: start: 20070605, end: 20071101
  3. MABTHERA [Suspect]
     Route: 042
     Dates: start: 20071211, end: 20071211
  4. MABTHERA [Suspect]
     Route: 042
     Dates: start: 20081016, end: 20081016
  5. MABTHERA [Suspect]
     Route: 042
     Dates: start: 20080311, end: 20080311
  6. MABTHERA [Suspect]
     Route: 042
     Dates: start: 20081023, end: 20081023
  7. ZEVALIN [Suspect]
     Indication: B-CELL LYMPHOMA
     Route: 042
     Dates: start: 20081016, end: 20081023
  8. DOXORUBICIN HYDROCHLORIDE [Suspect]
     Indication: B-CELL LYMPHOMA
     Route: 042
     Dates: start: 20070605, end: 20071101
  9. VINCRISTINE SULFATE GENERIC [Suspect]
     Indication: B-CELL LYMPHOMA
     Route: 042
     Dates: start: 20070605, end: 20071101
  10. PREDNISOLONE [Suspect]
     Indication: B-CELL LYMPHOMA
     Route: 042
     Dates: start: 20070605, end: 20071101
  11. ANTIHYPERTENSIVES [Concomitant]
     Indication: HYPERTENSION
     Route: 065

REACTIONS (3)
  - FEBRILE NEUTROPENIA [None]
  - NEUTROPENIA [None]
  - TUBERCULOSIS OF CENTRAL NERVOUS SYSTEM [None]
